FAERS Safety Report 16478203 (Version 1)
Quarter: 2019Q2

REPORT INFORMATION
  Report Type: Spontaneous
  Country: US (occurrence: US)
  Receive Date: 20190626
  Receipt Date: 20190626
  Transmission Date: 20190711
  Serious: No
  Sender: FDA-Public Use
  Company Number: US-ELI_LILLY_AND_COMPANY-US201906010418

PATIENT
  Sex: Male

DRUGS (2)
  1. METFORMIN [Concomitant]
     Active Substance: METFORMIN HYDROCHLORIDE
     Indication: DIABETES MELLITUS
     Dosage: UNK
  2. BASAGLAR [Suspect]
     Active Substance: INSULIN GLARGINE
     Indication: DIABETES MELLITUS
     Dosage: 14 U, TID
     Route: 058
     Dates: start: 20190120

REACTIONS (4)
  - Inappropriate schedule of product administration [Unknown]
  - Tongue discomfort [Unknown]
  - Dry mouth [Unknown]
  - Pollakiuria [Unknown]

NARRATIVE: CASE EVENT DATE: 20190618
